FAERS Safety Report 6373911-8 (Version None)
Quarter: 2009Q3

REPORT INFORMATION
  Report Type: 
  Country: None (occurrence: None)
  Receive Date: 20090924
  Receipt Date: 20090515
  Transmission Date: 20100115
  Serious: No
  Sender: FDA-Public Use
  Company Number: US-ASTRAZENECA-2009UW12668

PATIENT
  Sex: Female
  Weight: 49 kg

DRUGS (3)
  1. SEROQUEL [Suspect]
     Indication: INSOMNIA
     Route: 048
     Dates: start: 20090513
  2. SEROQUEL [Suspect]
     Route: 048
     Dates: start: 20090513
  3. VYVANSE [Concomitant]
     Indication: ATTENTION DEFICIT/HYPERACTIVITY DISORDER

REACTIONS (3)
  - EYE ROLLING [None]
  - FATIGUE [None]
  - SOMNOLENCE [None]
